FAERS Safety Report 25335446 (Version 3)
Quarter: 2025Q2

REPORT INFORMATION
  Report Type: Spontaneous
  Country: AU (occurrence: None)
  Receive Date: 20250520
  Receipt Date: 20250618
  Transmission Date: 20250717
  Serious: Yes (Life-Threatening, Other)
  Sender: ORION
  Company Number: AU-PFIZER INC-PV202500058397

PATIENT
  Age: 12 Year
  Sex: Female
  Weight: 45 kg

DRUGS (7)
  1. INFLIXIMAB [Suspect]
     Active Substance: INFLIXIMAB
     Indication: Crohn^s disease
     Dates: start: 20250408
  2. INFLIXIMAB [Suspect]
     Active Substance: INFLIXIMAB
  3. PREDNISOLONE [Suspect]
     Active Substance: PREDNISOLONE
     Indication: Crohn^s disease
  4. PREDNISOLONE [Suspect]
     Active Substance: PREDNISOLONE
     Dates: start: 20250404
  5. METHOTREXATE [Concomitant]
     Active Substance: METHOTREXATE
     Indication: Crohn^s disease
  6. METHOTREXATE [Concomitant]
     Active Substance: METHOTREXATE
     Dates: start: 20250527
  7. METHOTREXATE [Concomitant]
     Active Substance: METHOTREXATE

REACTIONS (1)
  - Crohn^s disease [Recovered/Resolved]

NARRATIVE: CASE EVENT DATE: 20250408
